FAERS Safety Report 5931382-7 (Version None)
Quarter: 2008Q4

REPORT INFORMATION
  Report Type: 
  Country: None (occurrence: None)
  Receive Date: 20081027
  Receipt Date: 20081017
  Transmission Date: 20090506
  Serious: Yes (Other)
  Sender: FDA-Public Use
  Company Number: JP-ROCHE-575465

PATIENT
  Age: 33 Year
  Sex: Female

DRUGS (4)
  1. DIAZEPAM [Suspect]
     Indication: DRUG USE FOR UNKNOWN INDICATION
     Dosage: ROUTE OF ADMINISTRATION REPORTED AS INTRAVENOUS DRIP INFUSION
     Route: 041
     Dates: start: 20080609, end: 20080609
  2. PENTAZOCINE LACTATE [Suspect]
     Indication: DRUG USE FOR UNKNOWN INDICATION
     Dosage: ROUTE OF ADMINISTRATION REPORTED AS INTRAVENOUS DRIP INFUSION
     Route: 041
     Dates: start: 20080609, end: 20080609
  3. KETAMINE HYDROCHLORIDE [Concomitant]
     Dosage: DRUG NAME RPEORTED AS KETALAR.
     Route: 041
     Dates: start: 20080609, end: 20080609
  4. ATROPINE SULFATE [Concomitant]
     Dosage: DRUG REPORTED AS ALTROPINE SULFATE HYDRATE
     Route: 041
     Dates: start: 20080609, end: 20080609

REACTIONS (1)
  - INJECTION SITE THROMBOSIS [None]
